FAERS Safety Report 9396309 (Version 1)
Quarter: 2013Q3

REPORT INFORMATION
  Report Type: Spontaneous
  Country: US (occurrence: None)
  Receive Date: 20130708
  Receipt Date: 20130708
  Transmission Date: 20140515
  Serious: Yes (Other)
  Sender: FDA-Public Use
  Company Number: 2013-263

PATIENT
  Age: 57 Year
  Sex: Female

DRUGS (2)
  1. PRIALT (ZICONOTIDE) INTRATHECAL INFUSION [Suspect]
  2. DILAUDID (HYDROMORPHONE HYDROCHLORIDE) INJECTION [Suspect]

REACTIONS (1)
  - Device issue [None]
